FAERS Safety Report 21264425 (Version 4)
Quarter: 2022Q4

REPORT INFORMATION
  Report Type: Spontaneous
  Country: JP (occurrence: JP)
  Receive Date: 20220829
  Receipt Date: 20221019
  Transmission Date: 20230113
  Serious: Yes (Hospitalization)
  Sender: FDA-Public Use
  Company Number: JP-GSKJP-JP2022JPN114929

PATIENT
  Sex: Male

DRUGS (5)
  1. BOTOX [Suspect]
     Active Substance: ONABOTULINUMTOXINA
     Indication: Muscle spasticity
     Dosage: 25 UNITS, SINGLE
     Route: 030
     Dates: start: 20220728, end: 20220728
  2. BOTOX [Suspect]
     Active Substance: ONABOTULINUMTOXINA
     Dosage: 75 UNITS, SINGLE
     Route: 030
     Dates: start: 20220728, end: 20220728
  3. INSULIN LISPRO AABC [Concomitant]
     Indication: Diabetes mellitus
     Dosage: 6 IU IN THE MORNING, 3 IU AT LUNCH AND IN THE EVENING
     Dates: start: 20220629
  4. VICTOZA [Concomitant]
     Active Substance: LIRAGLUTIDE
     Indication: Diabetes mellitus
     Dosage: 1.8 MG, QD , IN THE MORNING
     Route: 058
     Dates: start: 2016
  5. CALONAL [Concomitant]
     Active Substance: ACETAMINOPHEN
     Dosage: 500 MG, TID
     Route: 048

REACTIONS (11)
  - Arthropathy [Recovering/Resolving]
  - Pain in extremity [Recovering/Resolving]
  - Musculoskeletal pain [Recovering/Resolving]
  - Hypoaesthesia [Recovering/Resolving]
  - Gait disturbance [Recovering/Resolving]
  - Herpes zoster [Recovered/Resolved]
  - Monoplegia [Unknown]
  - Intervertebral disc protrusion [Recovering/Resolving]
  - Synovitis [Recovering/Resolving]
  - Spondylitis [Unknown]
  - Injection site pain [Recovering/Resolving]

NARRATIVE: CASE EVENT DATE: 20220728
